FAERS Safety Report 9169144 (Version 1)
Quarter: 2013Q1

REPORT INFORMATION
  Report Type: Spontaneous
  Country: US (occurrence: None)
  Receive Date: 20130308
  Receipt Date: 20130308
  Transmission Date: 20140127
  Serious: Yes (Other)
  Sender: FDA-Public Use
  Company Number: 2013AP003343

PATIENT
  Sex: Female

DRUGS (1)
  1. ALENDRONATE SODIUM TABLETS [Suspect]
     Indication: OSTEOPOROSIS

REACTIONS (7)
  - Femur fracture [None]
  - Bone disorder [None]
  - Pain [None]
  - Multiple fractures [None]
  - Emotional distress [None]
  - Low turnover osteopathy [None]
  - Quality of life decreased [None]
